FAERS Safety Report 10540748 (Version 3)
Quarter: 2015Q3

REPORT INFORMATION
  Report Type: Report from Study
  Country: DE (occurrence: DE)
  Receive Date: 20141024
  Receipt Date: 20150728
  Transmission Date: 20151125
  Serious: Yes (Hospitalization)
  Sender: FDA-Public Use
  Company Number: DE-TEVA-515800GER

PATIENT
  Age: 45 Year
  Sex: Female
  Weight: 63 kg

DRUGS (3)
  1. GEMCITABINE [Suspect]
     Active Substance: GEMCITABINE\GEMCITABINE HYDROCHLORIDE
     Indication: BREAST CANCER FEMALE
     Dosage: ON DAY 1 AND 8 OF EACH CYCLE; LAST DOSE PRIOR TO THE SAE: 09-OCT-2014
     Route: 042
     Dates: start: 20140814
  2. MCP [Concomitant]
     Active Substance: METOCLOPRAMIDE HYDROCHLORIDE
     Dosage: 30 MG DAILY ON DEMAND
     Dates: start: 20140814, end: 20141106
  3. ABRAXANE [Suspect]
     Active Substance: PACLITAXEL
     Indication: BREAST CANCER FEMALE
     Dosage: ON DAY 1 AND 8 OF EACH CYCLE; LAST DOSE PRIOR TO THE SAE: 09-OCT-2014
     Route: 042
     Dates: start: 20140814

REACTIONS (1)
  - Venous thrombosis [Recovered/Resolved]

NARRATIVE: CASE EVENT DATE: 20141012
